FAERS Safety Report 7240941-3 (Version None)
Quarter: 2011Q1

REPORT INFORMATION
  Report Type: 
  Country: None (occurrence: None)
  Receive Date: 20110120
  Receipt Date: 20110120
  Transmission Date: 20110831
  Serious: Yes (Other)
  Sender: FDA-Public Use
  Company Number: None

PATIENT

DRUGS (3)
  1. BACTROBAN [Concomitant]
  2. MUPIROCIN [Suspect]
     Indication: STAPHYLOCOCCAL INFECTION
     Dates: start: 20110105
  3. MUPIROCIN [Suspect]
     Indication: BACTERIAL RHINITIS
     Dates: start: 20110105

REACTIONS (3)
  - PRODUCT SUBSTITUTION ISSUE [None]
  - RASH [None]
  - URTICARIA [None]
